FAERS Safety Report 8482561-9 (Version None)
Quarter: 2012Q3

REPORT INFORMATION
  Report Type: 
  Country: None (occurrence: None)
  Receive Date: 20120702
  Receipt Date: 20120622
  Transmission Date: 20120928
  Serious: Yes (Hospitalization)
  Sender: FDA-Public Use
  Company Number: US-ABBOTT-12P-163-0936636-00

PATIENT
  Sex: Male
  Weight: 65.83 kg

DRUGS (3)
  1. HUMIRA [Suspect]
     Indication: CROHN'S DISEASE
     Route: 058
     Dates: start: 20110701, end: 20120401
  2. PENTASA [Concomitant]
     Indication: PRODUCT USED FOR UNKNOWN INDICATION
  3. NEXIUM [Concomitant]
     Indication: PRODUCT USED FOR UNKNOWN INDICATION

REACTIONS (8)
  - DRUG SPECIFIC ANTIBODY PRESENT [None]
  - ABDOMINAL PAIN [None]
  - DRUG EFFECT DECREASED [None]
  - PYREXIA [None]
  - CROHN'S DISEASE [None]
  - HYPERHIDROSIS [None]
  - INTESTINAL FISTULA [None]
  - INTESTINAL PERFORATION [None]
